FAERS Safety Report 19004648 (Version 8)
Quarter: 2021Q3

REPORT INFORMATION
  Report Type: Spontaneous
  Country: US (occurrence: US)
  Receive Date: 20210312
  Receipt Date: 20210824
  Transmission Date: 20211014
  Serious: Yes (Other)
  Sender: FDA-Public Use
  Company Number: US-BAYER-2021-103789

PATIENT
  Age: 61 Year
  Sex: Male

DRUGS (4)
  1. KOGENATE FS [Suspect]
     Active Substance: ANTIHEMOPHILIC FACTOR, HUMAN RECOMBINANT
     Dosage: 1 DF, ONCE; FOR TREATMENT OF LEFT ELBOW BLEED
     Route: 042
     Dates: start: 20210310
  2. KOGENATE FS [Suspect]
     Active Substance: ANTIHEMOPHILIC FACTOR, HUMAN RECOMBINANT
     Dosage: 1 DF, ONCE; FOR LEFT ELBOW BLEED
     Route: 042
     Dates: start: 20210409, end: 20210409
  3. KOGENATE FS [Suspect]
     Active Substance: ANTIHEMOPHILIC FACTOR, HUMAN RECOMBINANT
     Dosage: 3000 U
     Route: 042
  4. KOGENATE FS [Suspect]
     Active Substance: ANTIHEMOPHILIC FACTOR, HUMAN RECOMBINANT
     Dosage: 2 DF TO TREAT RIB BRUISING
     Dates: start: 20210615

REACTIONS (10)
  - Haemorrhage [Recovered/Resolved]
  - Accident [Recovered/Resolved]
  - Musculoskeletal chest pain [Not Recovered/Not Resolved]
  - Pain [Recovered/Resolved]
  - Haemarthrosis [Recovered/Resolved]
  - Bone contusion [Recovered/Resolved]
  - Haemarthrosis [None]
  - Pain in extremity [Recovered/Resolved]
  - Polyarthritis [None]
  - Arthralgia [Recovered/Resolved]

NARRATIVE: CASE EVENT DATE: 20210310
